FAERS Safety Report 14885301 (Version 1)
Quarter: 2018Q2

REPORT INFORMATION
  Report Type: Report from Study
  Country: AU (occurrence: AU)
  Receive Date: 20180511
  Receipt Date: 20180511
  Transmission Date: 20180711
  Serious: Yes (Hospitalization, Other)
  Sender: FDA-Public Use
  Company Number: AU-EXELIXIS-XL18418013919

PATIENT
  Age: 58 Year
  Sex: Male
  Weight: 106 kg

DRUGS (12)
  1. KARVEZIDE [Concomitant]
     Active Substance: HYDROCHLOROTHIAZIDE\IRBESARTAN
  2. ASPIRIN. [Concomitant]
     Active Substance: ASPIRIN
  3. ISONIAZID. [Concomitant]
     Active Substance: ISONIAZID
  4. LERCANIDIPINE [Concomitant]
     Active Substance: LERCANIDIPINE
  5. ROSUVASTATIN. [Concomitant]
     Active Substance: ROSUVASTATIN
  6. NIVOLUMAB [Suspect]
     Active Substance: NIVOLUMAB
     Indication: RENAL CELL CARCINOMA
     Dosage: 240 MG, UNK
     Route: 042
     Dates: start: 20180216, end: 20180412
  7. MOMETASONE [Concomitant]
     Active Substance: MOMETASONE
  8. CABOZANTINIB [Suspect]
     Active Substance: CABOZANTINIB
     Indication: RENAL CELL CARCINOMA
     Dosage: 40 MG, UNK
     Route: 048
     Dates: start: 20180216, end: 20180412
  9. ETHAMBUTOL [Concomitant]
     Active Substance: ETHAMBUTOL HYDROCHLORIDE
  10. PYRIDOXINE [Concomitant]
     Active Substance: PYRIDOXINE
  11. PYRAZINAMIDE. [Concomitant]
     Active Substance: PYRAZINAMIDE
  12. RIFAMPICIN [Concomitant]
     Active Substance: RIFAMPIN

REACTIONS (1)
  - Hepatitis [Not Recovered/Not Resolved]

NARRATIVE: CASE EVENT DATE: 20180426
